FAERS Safety Report 19660128 (Version 1)
Quarter: 2021Q3

REPORT INFORMATION
  Report Type: Spontaneous
  Country: US (occurrence: US)
  Receive Date: 20210804
  Receipt Date: 20210804
  Transmission Date: 20211014
  Serious: Yes (Death)
  Sender: FDA-Public Use
  Company Number: None

PATIENT
  Age: 78 Year
  Sex: Female

DRUGS (1)
  1. TADALAFIL TAB 20MG A2 [Suspect]
     Active Substance: TADALAFIL
     Dosage: ?          OTHER FREQUENCY:OTHER;?
     Route: 048
     Dates: start: 2017

REACTIONS (1)
  - Death [None]

NARRATIVE: CASE EVENT DATE: 20210729
